FAERS Safety Report 8349323-4 (Version None)
Quarter: 2012Q2

REPORT INFORMATION
  Report Type: 
  Country: None (occurrence: None)
  Receive Date: 20120510
  Receipt Date: 20120508
  Transmission Date: 20120825
  Serious: Yes (Other)
  Sender: FDA-Public Use
  Company Number: PHFR2011GB006766

PATIENT
  Sex: Female
  Weight: 92 kg

DRUGS (2)
  1. TRILEPTAL [Suspect]
     Indication: EPILEPSY
     Dosage: 1800 UKN, UNK
     Route: 048
     Dates: start: 20000101
  2. VALPROATE SODIUM [Concomitant]
     Indication: EPILEPSY
     Dosage: 2 G, UNK
     Route: 048
     Dates: start: 20000101

REACTIONS (2)
  - OEDEMA PERIPHERAL [None]
  - THYROID DISORDER [None]
